FAERS Safety Report 6355931-2 (Version None)
Quarter: 2009Q3

REPORT INFORMATION
  Report Type: 
  Country: None (occurrence: None)
  Receive Date: 20090911
  Receipt Date: 20090911
  Transmission Date: 20100115
  Serious: Yes (Disabling, Other)
  Sender: FDA-Public Use
  Company Number: None

PATIENT
  Age: 64 Year
  Sex: Female
  Weight: 99.7913 kg

DRUGS (2)
  1. LEVAQUIN [Suspect]
     Indication: MUSCULOSKELETAL DISORDER
     Dosage: 250MG 1X DAILY ORAL; 500MG 1X DAILY ORAL  JULY 2008 AND NUMEROUS TIMES THRU FEB. 2009
     Route: 048
  2. LEVAQUIN [Suspect]
     Indication: URINARY TRACT INFECTION
     Dosage: 250MG 1X DAILY ORAL; 500MG 1X DAILY ORAL  JULY 2008 AND NUMEROUS TIMES THRU FEB. 2009
     Route: 048

REACTIONS (3)
  - FOOT DEFORMITY [None]
  - OEDEMA PERIPHERAL [None]
  - PAIN IN EXTREMITY [None]
